FAERS Safety Report 14778021 (Version 1)
Quarter: 2018Q2

REPORT INFORMATION
  Report Type: Spontaneous
  Country: HK (occurrence: HK)
  Receive Date: 20180419
  Receipt Date: 20180419
  Transmission Date: 20180711
  Serious: Yes (Death, Hospitalization, Other)
  Sender: FDA-Public Use
  Company Number: HK-ACTELION-A-CH2018-170938

PATIENT
  Age: 59 Year
  Sex: Female

DRUGS (1)
  1. OPSUMIT [Suspect]
     Active Substance: MACITENTAN
     Indication: PULMONARY HYPERTENSION
     Dosage: 10 MG, QD
     Route: 048
     Dates: start: 20170817, end: 20170828

REACTIONS (3)
  - Sepsis [Unknown]
  - Cerebral haemorrhage [Fatal]
  - Cardiac failure [Unknown]

NARRATIVE: CASE EVENT DATE: 20170902
